FAERS Safety Report 4962238-4 (Version None)
Quarter: 2006Q2

REPORT INFORMATION
  Report Type: 
  Country: None (occurrence: None)
  Receive Date: 20060404
  Receipt Date: 20050916
  Transmission Date: 20061013
  Serious: Yes (Hospitalization, Other)
  Sender: FDA-Public Use
  Company Number: PHNR2005AU01442

PATIENT
  Age: 5 Year
  Sex: Male

DRUGS (2)
  1. RITALIN [Suspect]
     Indication: ATTENTION DEFICIT/HYPERACTIVITY DISORDER
     Dosage: 10 MG, UNK
     Route: 048
  2. RITALIN [Suspect]
     Dosage: 10 MG, BID
     Dates: start: 20051201

REACTIONS (7)
  - CEREBROVASCULAR ACCIDENT [None]
  - CLUMSINESS [None]
  - HEMIPARESIS [None]
  - INFLUENZA [None]
  - PHYSIOTHERAPY [None]
  - REHABILITATION THERAPY [None]
  - SPEECH REHABILITATION [None]
